FAERS Safety Report 7410066-2 (Version None)
Quarter: 2011Q2

REPORT INFORMATION
  Report Type: 
  Country: None (occurrence: None)
  Receive Date: 20110412
  Receipt Date: 20110330
  Transmission Date: 20111010
  Serious: Yes (Hospitalization)
  Sender: FDA-Public Use
  Company Number: US-ELI_LILLY_AND_COMPANY-US201101003926

PATIENT
  Sex: Female

DRUGS (16)
  1. PRILOSEC [Concomitant]
     Dosage: 20 MG, DAILY (1/D)
  2. BRIMONIDINE [Concomitant]
     Dosage: 0.2 %,ONE DROP IN BOTH EYES TWICE DAILY
  3. ACETAMINOPHEN [Concomitant]
     Dosage: UNK, AS NEEDED
  4. IRON [Concomitant]
  5. ASPIRIN [Concomitant]
  6. NITROGLYCERIN [Concomitant]
     Dosage: 0.04 MG, UNK
  7. TAMOXIFEN CITRATE [Concomitant]
     Dates: end: 20110114
  8. VITAMIN D [Concomitant]
     Dosage: 90 MG, 3/D
  9. RANITIDINE [Concomitant]
     Dosage: 150 MG, DAILY (1/D) AT BED TIME
  10. ZYRTEC [Concomitant]
     Dosage: 10 MG, DAILY (1/D)
  11. COMBIVENT [Concomitant]
     Dosage: UNK, AS NEEDED
  12. ADVAIR DISKUS 100/50 [Concomitant]
     Dosage: UNK, AS NEEDED
  13. FORTEO [Suspect]
     Indication: OSTEOPOROSIS
     Dosage: 20 UG, DAILY (1/D)
     Dates: start: 20110106, end: 20110113
  14. SINGULAIR [Concomitant]
     Dosage: 10 MG, DAILY (1/D)
  15. CITRACAL + D [Concomitant]
     Dosage: 3 D/F, DAILY (1/D)
  16. ZETIA [Concomitant]
     Dosage: 10 MG, DAILY (1/D)

REACTIONS (5)
  - CONVULSION [None]
  - HEAD INJURY [None]
  - ORTHOSTATIC HYPOTENSION [None]
  - PULSE ABSENT [None]
  - TREMOR [None]
